FAERS Safety Report 5193656-X (Version None)
Quarter: 2006Q4

REPORT INFORMATION
  Report Type: 
  Country: None (occurrence: None)
  Receive Date: 20061221
  Receipt Date: 20061207
  Transmission Date: 20070319
  Serious: Yes (Other)
  Sender: FDA-Public Use
  Company Number: A-US2006-13748

PATIENT
  Age: 85 Year
  Sex: Female
  Weight: 59 kg

DRUGS (2)
  1. TRACLEER [Suspect]
     Indication: PULMONARY HYPERTENSION
     Dosage: 125 MG BID ORAL ; 62.5 MG BID ORAL
     Route: 048
     Dates: start: 20051214, end: 20060114
  2. TRACLEER [Suspect]
     Indication: PULMONARY HYPERTENSION
     Dosage: 125 MG BID ORAL ; 62.5 MG BID ORAL
     Route: 048
     Dates: start: 20060115, end: 20061103

REACTIONS (1)
  - LEUKOPENIA [None]
